FAERS Safety Report 18474028 (Version 1)
Quarter: 2020Q4

REPORT INFORMATION
  Report Type: Other
  Country: GB (occurrence: GB)
  Receive Date: 20201106
  Receipt Date: 20201106
  Transmission Date: 20210114
  Serious: No
  Sender: FDA-Public Use
  Company Number: GB-LUPIN PHARMACEUTICALS INC.-2020-00808

PATIENT
  Age: 21 Year
  Sex: Female
  Weight: 63 kg

DRUGS (1)
  1. SERTRALINE [Suspect]
     Active Substance: SERTRALINE HYDROCHLORIDE
     Indication: ADJUSTMENT DISORDER WITH MIXED ANXIETY AND DEPRESSED MOOD
     Dosage: 100 MILLIGRAM, UNK
     Route: 048
     Dates: start: 20180812, end: 20200117

REACTIONS (2)
  - Acne [Recovering/Resolving]
  - Menstruation irregular [Unknown]

NARRATIVE: CASE EVENT DATE: 20181014
